FAERS Safety Report 8725407 (Version 2)
Quarter: 2013Q2

REPORT INFORMATION
  Report Type: Report from Study
  Country: US (occurrence: US)
  Receive Date: 20120815
  Receipt Date: 20130614
  Transmission Date: 20140414
  Serious: Yes (Hospitalization, Other)
  Sender: FDA-Public Use
  Company Number: US-US-EMD SERONO, INC.-7153692

PATIENT
  Age: 42 Year
  Sex: Female
  Weight: 88 kg

DRUGS (5)
  1. REBIF [Suspect]
     Indication: MULTIPLE SCLEROSIS
     Route: 058
     Dates: start: 20020808
  2. LIPITOR [Concomitant]
     Indication: BLOOD CHOLESTEROL INCREASED
  3. METOPROLOL [Concomitant]
     Indication: HYPERTENSION
  4. BENTYL [Concomitant]
     Indication: PRODUCT USED FOR UNKNOWN INDICATION
  5. TRILEPTAL [Concomitant]
     Indication: CONVULSION

REACTIONS (8)
  - Rheumatoid arthritis [Not Recovered/Not Resolved]
  - Convulsion [Recovered/Resolved]
  - Fibromyalgia [Unknown]
  - Dysarthria [Recovered/Resolved]
  - Tremor [Recovered/Resolved]
  - Eye disorder [Recovered/Resolved]
  - Vomiting [Unknown]
  - Headache [Unknown]
